FAERS Safety Report 12490130 (Version 1)
Quarter: 2016Q2

REPORT INFORMATION
  Report Type: Report from Study
  Country: US (occurrence: US)
  Receive Date: 20160622
  Receipt Date: 20160622
  Transmission Date: 20160815
  Serious: Yes (Hospitalization, Other)
  Sender: FDA-Public Use
  Company Number: US-ABBVIE-16K-163-1653933-00

PATIENT
  Age: 56 Year
  Sex: Female

DRUGS (1)
  1. HUMIRA [Suspect]
     Active Substance: ADALIMUMAB
     Indication: RHEUMATOID ARTHRITIS
     Route: 058
     Dates: start: 201109

REACTIONS (5)
  - Sepsis [Recovered/Resolved]
  - Staphylococcal infection [Unknown]
  - Breast mass [Recovered/Resolved]
  - Urinary tract infection [Recovered/Resolved]
  - Wound drainage [Recovered/Resolved]

NARRATIVE: CASE EVENT DATE: 201212
